FAERS Safety Report 5595295-5 (Version None)
Quarter: 2008Q1

REPORT INFORMATION
  Report Type: 
  Country: None (occurrence: None)
  Receive Date: 20080117
  Receipt Date: 20080110
  Transmission Date: 20080703
  Serious: Yes (Other)
  Sender: FDA-Public Use
  Company Number: BR-PFIZER INC-2008003917

PATIENT
  Sex: Male
  Weight: 85 kg

DRUGS (1)
  1. CHANTIX [Suspect]
     Indication: SMOKING CESSATION THERAPY
     Route: 048
     Dates: start: 20080106, end: 20080107

REACTIONS (5)
  - BLINDNESS TRANSIENT [None]
  - BLOOD PRESSURE INCREASED [None]
  - HEADACHE [None]
  - NEUROLOGICAL SYMPTOM [None]
  - VISION BLURRED [None]
